FAERS Safety Report 11362545 (Version 1)
Quarter: 2015Q3

REPORT INFORMATION
  Report Type: Spontaneous
  Country: GB (occurrence: GB)
  Receive Date: 20150810
  Receipt Date: 20150810
  Transmission Date: 20151125
  Serious: Yes (Other)
  Sender: FDA-Public Use
  Company Number: GB-FRESENIUS KABI-FK201503788

PATIENT
  Age: 37 Year

DRUGS (10)
  1. EPIRUBICIN (MANUFACTURER UNKNOWN) [Suspect]
     Active Substance: EPIRUBICIN
     Indication: BREAST CANCER METASTATIC
     Route: 065
  2. DOCETAXEL (MANUFACTURER UNKNOWN) [Suspect]
     Active Substance: DOCETAXEL
     Indication: BREAST CANCER METASTATIC
     Route: 065
  3. TAMOXIFEN [Suspect]
     Active Substance: TAMOXIFEN
  4. HERCEPTIN [Suspect]
     Active Substance: TRASTUZUMAB
  5. ZOLADEX [Concomitant]
     Active Substance: GOSERELIN ACETATE
  6. PERJETA [Suspect]
     Active Substance: PERTUZUMAB
  7. FLUOROURACIL. [Suspect]
     Active Substance: FLUOROURACIL
  8. LETROZOLE. [Concomitant]
     Active Substance: LETROZOLE
  9. DENOSUMAB [Concomitant]
     Active Substance: DENOSUMAB
  10. CYCLOPHOSPHAMIDE. [Suspect]
     Active Substance: CYCLOPHOSPHAMIDE

REACTIONS (4)
  - Headache [Unknown]
  - No therapeutic response [Unknown]
  - Papilloedema [Unknown]
  - Metastases to meninges [Unknown]
